FAERS Safety Report 9665460 (Version 1)
Quarter: 2013Q4

REPORT INFORMATION
  Report Type: Spontaneous
  Country: US (occurrence: None)
  Receive Date: 20131101
  Receipt Date: 20131101
  Transmission Date: 20140711
  Serious: No
  Sender: FDA-Public Use
  Company Number: None

PATIENT
  Age: 38 Year
  Sex: Female
  Weight: 113.4 kg

DRUGS (1)
  1. MIRENA [Suspect]
     Indication: CONTRACEPTION
     Dosage: MIRENA VAGINAL
     Route: 067
     Dates: start: 20131002, end: 20131030

REACTIONS (5)
  - Back pain [None]
  - Arthralgia [None]
  - Asthenia [None]
  - Flat affect [None]
  - Anhedonia [None]
